FAERS Safety Report 17658877 (Version 6)
Quarter: 2020Q3

REPORT INFORMATION
  Report Type: Spontaneous
  Country: ES (occurrence: ES)
  Receive Date: 20200413
  Receipt Date: 20200817
  Transmission Date: 20201102
  Serious: Yes (Hospitalization)
  Sender: FDA-Public Use
  Company Number: ES-ROCHE-2576844

PATIENT
  Age: 49 Year
  Sex: Male

DRUGS (1)
  1. OCREVUS [Suspect]
     Active Substance: OCRELIZUMAB
     Indication: PRIMARY PROGRESSIVE MULTIPLE SCLEROSIS
     Dosage: LAST DOSE RECEIVED IN AUG/2019
     Route: 065

REACTIONS (1)
  - COVID-19 pneumonia [Recovering/Resolving]
